FAERS Safety Report 12203757 (Version 4)
Quarter: 2025Q3

REPORT INFORMATION
  Report Type: Spontaneous
  Country: EU (occurrence: EU)
  Receive Date: 20160323
  Receipt Date: 20250708
  Transmission Date: 20251020
  Serious: Yes (Hospitalization, Other)
  Sender: NOVARTIS
  Company Number: PHHY2016ES034803

PATIENT
  Age: 21 Year
  Sex: Male
  Weight: 85 kg

DRUGS (7)
  1. OCTREOTIDE [Suspect]
     Active Substance: OCTREOTIDE
     Indication: Anaemia
     Dosage: 200 UG, QW
     Route: 058
     Dates: start: 201201, end: 2012
  2. OCTREOTIDE [Suspect]
     Active Substance: OCTREOTIDE
     Dosage: 20 MG, QMO
     Route: 058
     Dates: start: 201203, end: 201408
  3. OCTREOTIDE [Suspect]
     Active Substance: OCTREOTIDE
     Route: 065
     Dates: start: 201501
  4. IRON [Concomitant]
     Active Substance: IRON
     Indication: Iron deficiency anaemia
     Route: 048
  5. VITAMIN K [Concomitant]
     Active Substance: PHYTONADIONE
     Indication: Lower gastrointestinal haemorrhage
     Route: 042
  6. FOLIC ACID [Concomitant]
     Active Substance: FOLIC ACID
     Indication: Iron deficiency anaemia
     Route: 048
  7. FERRIC CARBOXYMALTOSE [Concomitant]
     Active Substance: FERRIC CARBOXYMALTOSE
     Indication: Melanocytic naevus
     Dosage: 1000 MG, QMO
     Route: 065

REACTIONS (4)
  - Osteonecrosis [Recovering/Resolving]
  - Discomfort [Unknown]
  - Diarrhoea [Unknown]
  - Off label use [Unknown]

NARRATIVE: CASE EVENT DATE: 20120101
